FAERS Safety Report 5587626-7 (Version None)
Quarter: 2008Q1

REPORT INFORMATION
  Report Type: 
  Country: None (occurrence: None)
  Receive Date: 20080108
  Receipt Date: 20070828
  Transmission Date: 20080703
  Serious: No
  Sender: FDA-Public Use
  Company Number: A-US2007-17530

PATIENT
  Age: 5 Year
  Sex: Female

DRUGS (1)
  1. ZAVESCA [Suspect]
     Indication: NIEMANN-PICK DISEASE
     Dosage: 35 MG, BID
     Dates: start: 20050704, end: 20070822

REACTIONS (1)
  - CROHN'S DISEASE [None]
